FAERS Safety Report 5940783-2 (Version None)
Quarter: 2008Q4

REPORT INFORMATION
  Report Type: 
  Country: None (occurrence: None)
  Receive Date: 20081103
  Receipt Date: 20081103
  Transmission Date: 20090506
  Serious: Yes (Death, Life-Threatening, Hospitalization)
  Sender: FDA-Public Use
  Company Number: None

PATIENT
  Age: 75 Year
  Sex: Male
  Weight: 54.2 kg

DRUGS (2)
  1. WARFARIN SODIUM [Suspect]
     Indication: ATRIAL FIBRILLATION
     Dosage: 5 MG EVERY DAY PO
     Route: 048
     Dates: start: 20070606
  2. ASPIRIN [Suspect]
     Dosage: 81 MG EVERYDAY PO
     Route: 048
     Dates: start: 20070611

REACTIONS (2)
  - HAEMORRHAGE INTRACRANIAL [None]
  - VISION BLURRED [None]
